FAERS Safety Report 9168792 (Version 1)
Quarter: 2013Q1

REPORT INFORMATION
  Report Type: Spontaneous
  Country: US (occurrence: None)
  Receive Date: 20130314
  Receipt Date: 20130314
  Transmission Date: 20140127
  Serious: No
  Sender: FDA-Public Use
  Company Number: None

PATIENT
  Sex: Female
  Weight: 97.07 kg

DRUGS (3)
  1. LANSOPRAZOLE 30MG SANDOZ [Suspect]
     Indication: GASTROOESOPHAGEAL REFLUX DISEASE
     Dates: start: 2009
  2. PRILOSEC [Concomitant]
  3. PROTONIX [Concomitant]

REACTIONS (2)
  - Angina pectoris [None]
  - No therapeutic response [None]
